FAERS Safety Report 22133249 (Version 5)
Quarter: 2023Q4

REPORT INFORMATION
  Report Type: Spontaneous
  Country: US (occurrence: US)
  Receive Date: 20230324
  Receipt Date: 20231025
  Transmission Date: 20240109
  Serious: Yes (Hospitalization, Other)
  Sender: FDA-Public Use
  Company Number: US-GBT-021008

PATIENT
  Age: 6 Year
  Sex: Female
  Weight: 21.769 kg

DRUGS (3)
  1. OXBRYTA [Suspect]
     Active Substance: VOXELOTOR
     Indication: Sickle cell disease
     Dosage: 600 MG, 1X/DAY
     Route: 048
     Dates: start: 20230206
  2. OXBRYTA [Suspect]
     Active Substance: VOXELOTOR
     Dosage: 300MG TABLETS, TAKES 2 TABLETS, 600MG TOTAL
     Route: 048
     Dates: start: 202303
  3. HYDROXYUREA [Concomitant]
     Active Substance: HYDROXYUREA
     Indication: Sickle cell disease
     Dosage: 600 MG
     Dates: start: 201707

REACTIONS (7)
  - Acute chest syndrome [Unknown]
  - Viral infection [Unknown]
  - Product dose omission issue [Unknown]
  - Abdominal pain [Unknown]
  - Headache [Unknown]
  - Pyrexia [Unknown]
  - Blood bilirubin decreased [Unknown]

NARRATIVE: CASE EVENT DATE: 20230101
